FAERS Safety Report 8367080-2 (Version None)
Quarter: 2012Q2

REPORT INFORMATION
  Report Type: 
  Country: None (occurrence: None)
  Receive Date: 20120517
  Receipt Date: 20120508
  Transmission Date: 20120825
  Serious: No
  Sender: FDA-Public Use
  Company Number: US-ASTRAZENECA-2012SE29663

PATIENT
  Age: 64 Year
  Sex: Female

DRUGS (5)
  1. HYDROCODONE BITARTRATE [Concomitant]
  2. CYMBALTA [Suspect]
     Route: 065
  3. REMERON [Suspect]
     Indication: DEPRESSION
     Route: 065
     Dates: start: 20120401, end: 20120401
  4. TOPROL-XL [Suspect]
     Route: 048
  5. REMERON [Suspect]
     Indication: APPETITE DISORDER
     Route: 065
     Dates: start: 20120401, end: 20120401

REACTIONS (7)
  - MUSCLE TIGHTNESS [None]
  - FEELING ABNORMAL [None]
  - RESTLESS LEGS SYNDROME [None]
  - MUSCULOSKELETAL STIFFNESS [None]
  - FEELING JITTERY [None]
  - DIZZINESS [None]
  - STARING [None]
